FAERS Safety Report 5815682-7 (Version None)
Quarter: 2008Q3

REPORT INFORMATION
  Report Type: 
  Country: None (occurrence: None)
  Receive Date: 20080716
  Receipt Date: 20080708
  Transmission Date: 20090109
  Serious: Yes (Other)
  Sender: FDA-Public Use
  Company Number: 2008017430

PATIENT
  Age: 45 Year
  Sex: Female

DRUGS (2)
  1. LISTERINE WHITENING PRE-BRUSH RINSE (NO ACTIVE INGREDIENT) [Suspect]
     Indication: DENTAL CARE
     Dosage: 10 ML 2 X, ORAL
     Route: 048
     Dates: start: 20080618, end: 20080619
  2. LISTERINE TOOTH DEFENSE (SODIUM FLUORIDE) [Suspect]
     Dosage: ORAL
     Route: 048
     Dates: start: 20080618

REACTIONS (10)
  - EATING DISORDER [None]
  - GINGIVAL DISCOLOURATION [None]
  - HYPERSENSITIVITY [None]
  - HYPOAESTHESIA ORAL [None]
  - LACRIMATION INCREASED [None]
  - ORAL DISCOMFORT [None]
  - PAIN [None]
  - SENSATION OF HEAVINESS [None]
  - STOMATITIS [None]
  - SWELLING FACE [None]
